FAERS Safety Report 11826274 (Version 1)
Quarter: 2015Q4

REPORT INFORMATION
  Report Type: Spontaneous
  Country: US (occurrence: None)
  Receive Date: 20151210
  Receipt Date: 20151210
  Transmission Date: 20160305
  Serious: No
  Sender: FDA-Public Use
  Company Number: None

PATIENT

DRUGS (1)
  1. ENOXAPARIN SODIUM. [Suspect]
     Active Substance: ENOXAPARIN SODIUM
     Dosage: INJECTABLE SUBCUTANEOUS 60 MG/0.6 ML SINGLE DOSE SYRINGE
     Route: 058
     Dates: end: 2000

REACTIONS (3)
  - Product outer packaging issue [None]
  - Product label issue [None]
  - Medication error [None]
